FAERS Safety Report 23932686 (Version 1)
Quarter: 2024Q2

REPORT INFORMATION
  Report Type: Spontaneous
  Country: CN (occurrence: CN)
  Receive Date: 20240603
  Receipt Date: 20240603
  Transmission Date: 20240716
  Serious: Yes (Life-Threatening)
  Sender: FDA-Public Use
  Company Number: CN-BAYER-2024A080183

PATIENT
  Age: 60 Year
  Sex: Male
  Weight: 87 kg

DRUGS (1)
  1. ULTRAVIST [Suspect]
     Active Substance: IOPROMIDE
     Indication: Angiocardiogram
     Dosage: 60 ML, ONCE
     Route: 041
     Dates: start: 20240512, end: 20240512

REACTIONS (10)
  - Pruritus [Recovered/Resolved]
  - Face oedema [Recovering/Resolving]
  - Loss of consciousness [Recovered/Resolved]
  - Blood pressure decreased [Recovering/Resolving]
  - Peripheral coldness [Recovering/Resolving]
  - Cold sweat [Recovering/Resolving]
  - Tremor [Recovering/Resolving]
  - Hyperhidrosis [Recovering/Resolving]
  - Sinus bradycardia [None]
  - Respiratory rate increased [None]

NARRATIVE: CASE EVENT DATE: 20240512
